FAERS Safety Report 4719176-1 (Version None)
Quarter: 2005Q3

REPORT INFORMATION
  Report Type: 
  Country: None (occurrence: None)
  Receive Date: 20050720
  Receipt Date: 20050630
  Transmission Date: 20060218
  Serious: Yes (Hospitalization)
  Sender: FDA-Public Use
  Company Number: DSA_26729_2005

PATIENT
  Age: 24 Year
  Sex: Female

DRUGS (10)
  1. TAVOR [Suspect]
     Dosage: 3.5 MG PO
     Route: 048
     Dates: start: 20050209, end: 20050209
  2. TAVOR [Suspect]
     Dosage: 4 MG PO
     Route: 048
     Dates: start: 20050210, end: 20050210
  3. TAVOR [Suspect]
     Dosage: 3 GM Q DAY PO
     Route: 048
     Dates: start: 20050211, end: 20050213
  4. TAVOR [Suspect]
     Dosage: 2.5 MG PO
     Route: 048
     Dates: start: 20050214, end: 20050214
  5. TAVOR [Suspect]
     Dosage: 2 MG Q DAY PO
     Route: 048
     Dates: start: 20050215, end: 20050216
  6. TAVOR [Suspect]
     Dosage: 1 MG Q DAY PO
     Route: 048
     Dates: start: 20050217, end: 20050220
  7. TAVOR [Suspect]
     Dosage: 0.5 MG PO
     Route: 048
     Dates: start: 20050221, end: 20050221
  8. ABILIFY [Suspect]
     Dosage: 10 MG PO
     Route: 048
     Dates: start: 20030209, end: 20030209
  9. ABILIFY [Suspect]
     Dosage: 15 MG Q DAY PO
     Route: 048
     Dates: start: 20050210, end: 20050217
  10. ABILIFY [Suspect]
     Dosage: 10 MG Q DAY PO
     Route: 048
     Dates: start: 20050218, end: 20050225

REACTIONS (2)
  - PHOTOPSIA [None]
  - VISION BLURRED [None]
